FAERS Safety Report 21715744 (Version 1)
Quarter: 2022Q4

REPORT INFORMATION
  Report Type: Report from Study
  Country: AR (occurrence: AR)
  Receive Date: 20221212
  Receipt Date: 20221212
  Transmission Date: 20230113
  Serious: Yes (Hospitalization, Other)
  Sender: FDA-Public Use
  Company Number: AR-ABBVIE-4225040

PATIENT
  Sex: Male

DRUGS (2)
  1. HUMIRA [Suspect]
     Active Substance: ADALIMUMAB
     Indication: Uveitis
     Dosage: FROM STRENGTH: 20 MG
     Route: 058
     Dates: start: 20200702
  2. METHOTREXATE [Concomitant]
     Active Substance: METHOTREXATE
     Indication: Uveitis
     Dosage: FORM STRENGTH: 20 MG

REACTIONS (4)
  - Acne [Recovered/Resolved]
  - Uveitis [Recovering/Resolving]
  - Infection [Recovered/Resolved]
  - Arthritis [Recovering/Resolving]
